FAERS Safety Report 8064793-7 (Version None)
Quarter: 2012Q1

REPORT INFORMATION
  Report Type: 
  Country: None (occurrence: None)
  Receive Date: 20120124
  Receipt Date: 20120119
  Transmission Date: 20120608
  Serious: Yes (Other)
  Sender: FDA-Public Use
  Company Number: US-BIOGENIDEC-2011BI045453

PATIENT
  Age: 47 Year
  Sex: Male

DRUGS (12)
  1. LAMOTRIGINE [Concomitant]
     Indication: CONVULSION
     Route: 048
  2. TYSABRI [Suspect]
     Indication: MULTIPLE SCLEROSIS
     Route: 042
     Dates: start: 20101011, end: 20111107
  3. BUSPIRONE HCL [Concomitant]
  4. CITALOPRAM HYDROBROMIDE [Concomitant]
  5. TRAZODONE HCL [Concomitant]
  6. PHENYTOIN [Concomitant]
     Indication: CONVULSION
  7. ROPINIROLE [Concomitant]
     Indication: MUSCLE SPASTICITY
  8. BACLOFEN [Concomitant]
     Indication: MUSCLE SPASTICITY
     Route: 048
  9. TAMSULOSIN HCL [Concomitant]
     Indication: NEUROGENIC BLADDER
  10. BACLOFEN [Concomitant]
     Route: 048
  11. TIZANIDINE HCL [Concomitant]
  12. METHYLIN [Concomitant]

REACTIONS (5)
  - TRANSITIONAL CELL CARCINOMA [None]
  - MUSCULAR WEAKNESS [None]
  - MUSCLE TWITCHING [None]
  - MUSCLE SPASMS [None]
  - RENAL CANCER METASTATIC [None]
